FAERS Safety Report 10065015 (Version 1)
Quarter: 2014Q2

REPORT INFORMATION
  Report Type: Spontaneous
  Country: GB (occurrence: GB)
  Receive Date: 20140408
  Receipt Date: 20140408
  Transmission Date: 20141212
  Serious: Yes (Other)
  Sender: FDA-Public Use
  Company Number: GB-ACTAVIS-2014-06479

PATIENT
  Age: 32 Year
  Sex: Female

DRUGS (7)
  1. ALENDRONIC ACID (UNKNOWN) [Suspect]
     Indication: PRODUCT USED FOR UNKNOWN INDICATION
     Dosage: UNK; WEEKLY
     Route: 065
  2. FEXOFENADINE (UNKNOWN) [Suspect]
     Indication: ASTHMA
     Dosage: 180 MG, DAILY
     Route: 048
  3. MONTELUKAST (UNKNOWN) [Suspect]
     Indication: PRODUCT USED FOR UNKNOWN INDICATION
     Dosage: 10 MG, DAILY
     Route: 065
  4. THEOPHYLLINE (UNKNOWN) [Suspect]
     Indication: ASTHMA
     Dosage: 500 MG, DAILY
     Route: 048
  5. SPIRIVA [Suspect]
     Indication: ASTHMA
     Dosage: UNK
     Route: 065
  6. SYMBICORT [Suspect]
     Indication: ASTHMA
     Dosage: UNK; BID
     Route: 065
  7. XOLAIR [Suspect]
     Indication: ASTHMA
     Dosage: 600 MG, UNKNOWN; DURING 1 TRIMESTER
     Route: 058

REACTIONS (3)
  - Haemorrhage [Recovered/Resolved]
  - Skin infection [Recovering/Resolving]
  - Maternal exposure during pregnancy [Unknown]
